FAERS Safety Report 8575773-7 (Version None)
Quarter: 2012Q3

REPORT INFORMATION
  Report Type: 
  Country: None (occurrence: None)
  Receive Date: 20120807
  Receipt Date: 20120726
  Transmission Date: 20120928
  Serious: No
  Sender: FDA-Public Use
  Company Number: US-ASTRAZENECA-2011SE51331

PATIENT
  Sex: Female

DRUGS (1)
  1. NEXIUM [Suspect]
     Route: 048
     Dates: start: 20060501, end: 20071001

REACTIONS (4)
  - FOOT FRACTURE [None]
  - OSTEOPENIA [None]
  - OSTEOPOROSIS [None]
  - SKELETAL INJURY [None]
